FAERS Safety Report 23817737 (Version 1)
Quarter: 2024Q2

REPORT INFORMATION
  Report Type: Spontaneous
  Country: RU (occurrence: RU)
  Receive Date: 20240506
  Receipt Date: 20240506
  Transmission Date: 20240715
  Serious: Yes (Life-Threatening, Hospitalization, Disabling, Other)
  Sender: FDA-Public Use
  Company Number: None

PATIENT
  Age: 31 Year
  Sex: Male

DRUGS (4)
  1. FIASP [Suspect]
     Active Substance: INSULIN ASPART
     Indication: Vital functions abnormal
     Dosage: 64-75 IU PER DAY
     Route: 058
     Dates: start: 2020, end: 20230913
  2. INSULIN LISPRO [Suspect]
     Active Substance: INSULIN LISPRO
     Indication: Vital functions abnormal
     Dosage: 64-75 IU PER DAY
     Route: 058
     Dates: start: 20230913, end: 20231117
  3. UPERIO [Concomitant]
     Indication: Product used for unknown indication
     Dosage: 51,4 MG + 48,6 MG
     Route: 048
     Dates: start: 20230116
  4. METOPROLOL SUCCINATE [Concomitant]
     Active Substance: METOPROLOL SUCCINATE
     Indication: Product used for unknown indication
     Dosage: 5 MG
     Route: 048
     Dates: start: 20230116

REACTIONS (6)
  - Blood pressure increased [Recovering/Resolving]
  - Pruritus [Recovering/Resolving]
  - Hypoaesthesia [Recovering/Resolving]
  - Dizziness [Recovering/Resolving]
  - Hyperglycaemia [Recovering/Resolving]
  - Product use in unapproved indication [Recovered/Resolved]

NARRATIVE: CASE EVENT DATE: 20200101
